FAERS Safety Report 8985956 (Version 1)
Quarter: 2012Q4

REPORT INFORMATION
  Report Type: 
  Country: US (occurrence: US)
  Receive Date: 20121226
  Receipt Date: 20121226
  Transmission Date: 20130627
  Serious: No
  Sender: FDA-Public Use
  Company Number: US-ABBOTT-12P-163-1011610-00

PATIENT
  Age: 42 Year
  Sex: Female
  Weight: 58.11 kg

DRUGS (2)
  1. LUPRON DEPOT [Suspect]
     Indication: ACCIDENTAL EXPOSURE TO PRODUCT
  2. SYNTHROID [Concomitant]
     Indication: HYPOTHYROIDISM
     Dosage: 75 mcg daily

REACTIONS (6)
  - Device malfunction [Recovering/Resolving]
  - Accidental exposure to product [Recovered/Resolved]
  - Corneal abrasion [Recovering/Resolving]
  - Chemical burns of eye [Recovered/Resolved]
  - Foreign body sensation in eyes [Recovered/Resolved]
  - Skin burning sensation [Recovered/Resolved]
